FAERS Safety Report 7643941-4 (Version None)
Quarter: 2011Q3

REPORT INFORMATION
  Report Type: 
  Country: None (occurrence: None)
  Receive Date: 20110729
  Receipt Date: 20100712
  Transmission Date: 20111222
  Serious: No
  Sender: FDA-Public Use
  Company Number: US-GLAXOSMITHKLINE-A0869738A

PATIENT
  Age: 48 Year
  Sex: Female

DRUGS (10)
  1. ANTIVERT [Concomitant]
  2. FEOSOL [Concomitant]
  3. ATIVAN [Concomitant]
  4. LOVASTATIN [Concomitant]
  5. DYAZIDE [Suspect]
     Indication: DIURETIC THERAPY
     Dosage: 37.5MG PER DAY
     Route: 048
     Dates: start: 20100707
  6. IBUPROFEN [Concomitant]
  7. ZYRTEC [Concomitant]
  8. CRESTOR [Concomitant]
  9. PROGESTERONE [Concomitant]
  10. ASPIRIN [Concomitant]

REACTIONS (3)
  - HEADACHE [None]
  - FLATULENCE [None]
  - CONSTIPATION [None]
